FAERS Safety Report 16683430 (Version 2)
Quarter: 2019Q3

REPORT INFORMATION
  Report Type: Report from Study
  Country: JP (occurrence: JP)
  Receive Date: 20190808
  Receipt Date: 20190826
  Transmission Date: 20191004
  Serious: Yes (Other)
  Sender: FDA-Public Use
  Company Number: JP-ACTELION-A-CH2019-194037

PATIENT
  Age: 5 Month
  Sex: Male

DRUGS (13)
  1. LASIX [Concomitant]
     Active Substance: FUROSEMIDE
  2. ALDACTONE A [Concomitant]
     Active Substance: SPIRONOLACTONE
  3. FLOLAN [Concomitant]
     Active Substance: EPOPROSTENOL SODIUM
  4. ADCIRCA [Suspect]
     Active Substance: TADALAFIL
     Indication: PULMONARY ARTERIAL HYPERTENSION
     Dosage: 1.667 MG, TID
     Route: 048
     Dates: start: 20170515, end: 20170520
  5. FERROMIA [Concomitant]
     Active Substance: SODIUM FERROUS CITRATE
  6. THYRADIN-S [Concomitant]
     Active Substance: LEVOTHYROXINE
  7. OXYGEN. [Concomitant]
     Active Substance: OXYGEN
  8. NITRIC OXIDE. [Concomitant]
     Active Substance: NITRIC OXIDE
  9. CARBOCISTEINE [Concomitant]
     Active Substance: CARBOCYSTEINE
  10. CONTOL [Concomitant]
     Active Substance: CHLORDIAZEPOXIDE
  11. REVATIO [Concomitant]
     Active Substance: SILDENAFIL CITRATE
  12. OPSUMIT [Suspect]
     Active Substance: MACITENTAN
     Indication: PULMONARY ARTERIAL HYPERTENSION
     Dosage: 1 MG, QD
     Route: 048
     Dates: start: 20170515
  13. MUCOSAL [Concomitant]

REACTIONS (8)
  - Swelling [Recovered/Resolved]
  - Thoracotomy [Unknown]
  - Pulmonary congestion [Recovered/Resolved]
  - Pulmonary haemorrhage [Recovered/Resolved]
  - Haemoptysis [Recovered/Resolved]
  - Erythema [Recovered/Resolved]
  - Mediastinitis [Recovered/Resolved]
  - Debridement [Unknown]

NARRATIVE: CASE EVENT DATE: 20170519
